FAERS Safety Report 12368346 (Version 1)
Quarter: 2016Q2

REPORT INFORMATION
  Report Type: Spontaneous
  Country: KW (occurrence: KW)
  Receive Date: 20160513
  Receipt Date: 20160513
  Transmission Date: 20160815
  Serious: Yes (Hospitalization)
  Sender: FDA-Public Use
  Company Number: KW-ELI_LILLY_AND_COMPANY-KW201605003389

PATIENT
  Age: 26 Year
  Sex: Female

DRUGS (5)
  1. STRATTERA [Suspect]
     Active Substance: ATOMOXETINE HYDROCHLORIDE
     Indication: ATTENTION DEFICIT/HYPERACTIVITY DISORDER
     Dosage: 40 MG, QD
     Route: 065
  2. STRATTERA [Interacting]
     Active Substance: ATOMOXETINE HYDROCHLORIDE
     Dosage: 40 MG, QD
     Route: 065
  3. STRATTERA [Interacting]
     Active Substance: ATOMOXETINE HYDROCHLORIDE
     Dosage: 40 MG, BID
     Route: 065
  4. STRATTERA [Interacting]
     Active Substance: ATOMOXETINE HYDROCHLORIDE
     Dosage: 65 MG( 40MG AND 25MG), QD
     Route: 065
  5. PROZAC [Interacting]
     Active Substance: FLUOXETINE HYDROCHLORIDE
     Indication: MOOD ALTERED
     Dosage: 40 MG, QD

REACTIONS (2)
  - Stress cardiomyopathy [Recovered/Resolved]
  - Drug interaction [Unknown]
